FAERS Safety Report 6099219-6 (Version None)
Quarter: 2009Q1

REPORT INFORMATION
  Report Type: 
  Country: None (occurrence: None)
  Receive Date: 20090225
  Receipt Date: 20090225
  Transmission Date: 20090719
  Serious: Yes (Death)
  Sender: FDA-Public Use
  Company Number: None

PATIENT
  Age: 73 Year
  Sex: Female
  Weight: 107 kg

DRUGS (5)
  1. GLUCOTROL XL [Suspect]
     Indication: TYPE 2 DIABETES MELLITUS
     Dosage: 2.5 MG DAILY PO HOME MEDICATION
     Route: 048
  2. SULFAMETHOXAZOLE AND TRIMETHOPRIM [Suspect]
     Indication: URINARY TRACT INFECTION
     Dosage: 1 TABLET BID PO
     Route: 048
     Dates: start: 20090211, end: 20090215
  3. METFORMIN HCL [Concomitant]
  4. LISINOPRIL [Concomitant]
  5. SPIRONOLACTONE [Concomitant]

REACTIONS (8)
  - ACIDOSIS [None]
  - CARDIAC FAILURE CONGESTIVE [None]
  - DRUG CLEARANCE DECREASED [None]
  - DRUG INTERACTION [None]
  - ENCEPHALOPATHY [None]
  - HYPOGLYCAEMIA [None]
  - PLEURAL EFFUSION [None]
  - RENAL FAILURE ACUTE [None]
